FAERS Safety Report 4691837-2 (Version None)
Quarter: 2005Q2

REPORT INFORMATION
  Report Type: 
  Country: None (occurrence: None)
  Receive Date: 20050615
  Receipt Date: 20050615
  Transmission Date: 20051028
  Serious: Yes (Hospitalization)
  Sender: FDA-Public Use
  Company Number: None

PATIENT
  Age: 78 Year
  Sex: Female
  Weight: 89.4 kg

DRUGS (1)
  1. CEPHALEXIN [Suspect]
     Indication: UPPER RESPIRATORY TRACT INFECTION
     Dosage: ORAL
     Route: 048

REACTIONS (5)
  - CHEST DISCOMFORT [None]
  - DRUG HYPERSENSITIVITY [None]
  - SINUS BRADYCARDIA [None]
  - THERAPY NON-RESPONDER [None]
  - URTICARIA [None]
